FAERS Safety Report 7388225-7 (Version None)
Quarter: 2011Q1

REPORT INFORMATION
  Report Type: 
  Country: None (occurrence: None)
  Receive Date: 20110329
  Receipt Date: 20110329
  Transmission Date: 20110831
  Serious: Yes (Other)
  Sender: FDA-Public Use
  Company Number: None

PATIENT
  Sex: Female

DRUGS (2)
  1. PRED FORTE [Suspect]
     Indication: UVEITIS
     Dosage: 1GTT - OU - BID QD
  2. PRED FORTE [Suspect]
     Indication: GLAUCOMA
     Dosage: 1GTT - OU - BID QD

REACTIONS (2)
  - PRODUCT SUBSTITUTION ISSUE [None]
  - INFLAMMATION [None]
